FAERS Safety Report 17791255 (Version 1)
Quarter: 2020Q2

REPORT INFORMATION
  Report Type: Spontaneous
  Country: US (occurrence: US)
  Receive Date: 20200514
  Receipt Date: 20200514
  Transmission Date: 20200714
  Serious: No
  Sender: FDA-Public Use
  Company Number: None

PATIENT
  Age: 68 Year
  Sex: Female

DRUGS (2)
  1. ENBREL [Suspect]
     Active Substance: ETANERCEPT
     Indication: RHEUMATOID ARTHRITIS
     Dosage: USING THE AUTO TOUCH DEVICE AS DIRECTED.
     Route: 058
     Dates: start: 202004
  2. ENBREL [Suspect]
     Active Substance: ETANERCEPT
     Indication: PSORIATIC ARTHROPATHY
     Dosage: USING THE AUTO TOUCH DEVICE AS DIRECTED.
     Route: 058
     Dates: start: 202004

REACTIONS (6)
  - Dyspnoea [None]
  - Dysphonia [None]
  - Malaise [None]
  - Pyrexia [None]
  - Cough [None]
  - Hypersensitivity [None]
